FAERS Safety Report 6024159-8 (Version None)
Quarter: 2008Q4

REPORT INFORMATION
  Report Type: 
  Country: None (occurrence: None)
  Receive Date: 20081230
  Receipt Date: 20081218
  Transmission Date: 20090506
  Serious: Yes (Hospitalization, Other)
  Sender: FDA-Public Use
  Company Number: US-PFIZER INC-2008160163

PATIENT
  Age: 39 Year
  Sex: Male
  Weight: 181.41 kg

DRUGS (3)
  1. GEODON [Suspect]
     Dosage: 60 MG, 2X/DAY
     Dates: start: 20081001
  2. ZOLOFT [Suspect]
     Dosage: 100 MG, 1X/DAY
     Dates: start: 20081001
  3. TRAZODONE HYDROCHLORIDE [Concomitant]
     Dosage: 150 MG, 1X/DAY
     Dates: start: 20081001

REACTIONS (4)
  - DEPRESSION [None]
  - HALLUCINATION, AUDITORY [None]
  - NIGHTMARE [None]
  - SUICIDAL IDEATION [None]
